FAERS Safety Report 5573421-1 (Version None)
Quarter: 2007Q4

REPORT INFORMATION
  Report Type: 
  Country: None (occurrence: None)
  Receive Date: 20071220
  Receipt Date: 20071220
  Transmission Date: 20080405
  Serious: No
  Sender: FDA-Public Use
  Company Number: None

PATIENT
  Age: 60 Year
  Sex: Male

DRUGS (1)
  1. VARENICLINR [Suspect]
     Indication: SMOKING CESSATION THERAPY
     Dosage: 1MG  BID  PO
     Route: 048
     Dates: start: 20071106, end: 20071211

REACTIONS (1)
  - PSORIASIS [None]
